FAERS Safety Report 6914717-8 (Version None)
Quarter: 2010Q3

REPORT INFORMATION
  Report Type: 
  Country: None (occurrence: None)
  Receive Date: 20100804
  Receipt Date: 20100624
  Transmission Date: 20110219
  Serious: Yes (Other)
  Sender: FDA-Public Use
  Company Number: 2010SP019875

PATIENT
  Age: 68 Year
  Sex: Male
  Weight: 72.5755 kg

DRUGS (2)
  1. CLARITIN-D [Suspect]
     Indication: COUGH
     Dosage: 10 MG; QD; PO
     Route: 048
     Dates: start: 20100402, end: 20100404
  2. CLARITIN-D [Suspect]
     Indication: SEASONAL ALLERGY
     Dosage: 10 MG; QD; PO
     Route: 048
     Dates: start: 20100402, end: 20100404

REACTIONS (4)
  - BACK PAIN [None]
  - CONSTIPATION [None]
  - DYSURIA [None]
  - RENAL PAIN [None]
